FAERS Safety Report 8120683-2 (Version None)
Quarter: 2012Q1

REPORT INFORMATION
  Report Type: 
  Country: None (occurrence: None)
  Receive Date: 20120207
  Receipt Date: 20120125
  Transmission Date: 20120608
  Serious: Yes (Other)
  Sender: FDA-Public Use
  Company Number: PHHY2012BR007404

PATIENT
  Sex: Female
  Weight: 61 kg

DRUGS (11)
  1. SIMVASTATIN [Suspect]
     Dosage: 10 MG, UNK
  2. LOSARTAN+HYDROCHLOROTHIAZIDE SANDOZ [Suspect]
     Dosage: UNK
  3. ASPIRIN [Concomitant]
     Dosage: UNK
  4. VALERIAN [Concomitant]
     Dosage: 50 MG, UNK
  5. CALCIUM [Concomitant]
     Dosage: 600 MG, UNK
  6. VITAMIN D [Concomitant]
     Dosage: 4000 IU, UNK
  7. GINKGO BILOBA [Concomitant]
     Dosage: 120 MG, UNK
  8. VERTIZINE D [Concomitant]
     Dosage: 3/10 MG
  9. DIOVAN HCT [Suspect]
     Indication: HYPERTENSION
     Dosage: 1 TABLET (320/25 MG) DAILY IN THE MORNING
     Route: 048
     Dates: start: 20110101
  10. ALENDRONATE SODIUM [Concomitant]
     Dosage: 70 MG, UNK
  11. ATENOLOL [Concomitant]
     Dosage: 25 MG, UNK

REACTIONS (17)
  - BONE PAIN [None]
  - CEREBROVASCULAR DISORDER [None]
  - MYALGIA [None]
  - BONE DISORDER [None]
  - FEELING HOT [None]
  - DIZZINESS [None]
  - BLOOD PRESSURE INCREASED [None]
  - CONDITION AGGRAVATED [None]
  - ANXIETY [None]
  - DRY MOUTH [None]
  - OSTEOPENIA [None]
  - DYSGEUSIA [None]
  - TINNITUS [None]
  - LABYRINTHITIS [None]
  - HEADACHE [None]
  - PAIN IN EXTREMITY [None]
  - BLOOD PRESSURE FLUCTUATION [None]
